FAERS Safety Report 23339232 (Version 1)
Quarter: 2023Q4

REPORT INFORMATION
  Report Type: Spontaneous
  Country: CH (occurrence: CH)
  Receive Date: 20231226
  Receipt Date: 20231226
  Transmission Date: 20240110
  Serious: Yes (Other)
  Sender: FDA-Public Use
  Company Number: None

PATIENT
  Age: 54 Year
  Sex: Male
  Weight: 112 kg

DRUGS (65)
  1. MEROPENEM [Suspect]
     Active Substance: MEROPENEM
     Indication: Endocarditis
     Dosage: 1 G
     Dates: start: 20230912, end: 20230915
  2. MEROPENEM [Suspect]
     Active Substance: MEROPENEM
     Indication: Staphylococcal infection
     Dosage: 1 G
     Dates: start: 20231026, end: 20231027
  3. MEROPENEM [Suspect]
     Active Substance: MEROPENEM
     Indication: Enterococcal infection
  4. SULFAMETHOXAZOLE\TRIMETHOPRIM [Suspect]
     Active Substance: SULFAMETHOXAZOLE\TRIMETHOPRIM
     Indication: Endocarditis
     Dosage: UNK
     Dates: start: 20231017, end: 20231025
  5. SULFAMETHOXAZOLE\TRIMETHOPRIM [Suspect]
     Active Substance: SULFAMETHOXAZOLE\TRIMETHOPRIM
     Indication: Staphylococcal infection
  6. SULFAMETHOXAZOLE\TRIMETHOPRIM [Suspect]
     Active Substance: SULFAMETHOXAZOLE\TRIMETHOPRIM
     Indication: Enterococcal infection
  7. TORSEMIDE [Suspect]
     Active Substance: TORSEMIDE
     Dosage: 15 MG, QD
     Dates: start: 20231013
  8. CANDESARTAN CILEXETIL [Suspect]
     Active Substance: CANDESARTAN CILEXETIL
     Dosage: 16 MG, QD
     Dates: start: 20231018
  9. AMLODIPINE BESYLATE [Suspect]
     Active Substance: AMLODIPINE BESYLATE
     Dosage: 5 MG
     Dates: start: 20231017, end: 20231018
  10. AMLODIPINE BESYLATE [Suspect]
     Active Substance: AMLODIPINE BESYLATE
     Dosage: 10 MG, QD
     Dates: start: 20231019
  11. ENOXAPARIN SODIUM [Suspect]
     Active Substance: ENOXAPARIN SODIUM
     Dosage: UNK
     Dates: start: 20231020
  12. CLONIDINE [Suspect]
     Active Substance: CLONIDINE
     Dosage: 150 UG
     Dates: start: 20230921, end: 20230921
  13. CLONIDINE [Suspect]
     Active Substance: CLONIDINE
     Dosage: UNK, PRN
     Dates: start: 20231028
  14. REMDESIVIR [Suspect]
     Active Substance: REMDESIVIR
     Indication: COVID-19
     Dosage: 100 MG
     Dates: start: 20231023, end: 20231025
  15. CEFTRIAXONE [Concomitant]
     Active Substance: CEFTRIAXONE\CEFTRIAXONE SODIUM
     Indication: Endocarditis
     Dosage: UNK
     Dates: start: 20230911, end: 20230912
  16. CEFTRIAXONE [Concomitant]
     Active Substance: CEFTRIAXONE\CEFTRIAXONE SODIUM
     Indication: Staphylococcal infection
  17. CEFTRIAXONE [Concomitant]
     Active Substance: CEFTRIAXONE\CEFTRIAXONE SODIUM
     Indication: Enterococcal infection
  18. VANCOCIN [Concomitant]
     Active Substance: VANCOMYCIN HYDROCHLORIDE
     Indication: Endocarditis
     Dosage: 500 MG
     Route: 042
     Dates: start: 20230912, end: 20230914
  19. VANCOCIN [Concomitant]
     Active Substance: VANCOMYCIN HYDROCHLORIDE
     Indication: Staphylococcal infection
  20. VANCOCIN [Concomitant]
     Active Substance: VANCOMYCIN HYDROCHLORIDE
     Indication: Enterococcal infection
  21. AMOXICILLIN\CLAVULANATE POTASSIUM [Concomitant]
     Active Substance: AMOXICILLIN\CLAVULANATE POTASSIUM
     Indication: Endocarditis
     Dosage: 2.2 G
     Dates: start: 20230916, end: 20231017
  22. AMOXICILLIN\CLAVULANATE POTASSIUM [Concomitant]
     Active Substance: AMOXICILLIN\CLAVULANATE POTASSIUM
     Indication: Staphylococcal infection
     Dosage: 2.2 G
     Dates: start: 20231025, end: 20231026
  23. AMOXICILLIN\CLAVULANATE POTASSIUM [Concomitant]
     Active Substance: AMOXICILLIN\CLAVULANATE POTASSIUM
     Indication: Enterococcal infection
  24. CEFEPIME [Concomitant]
     Active Substance: CEFEPIME HYDROCHLORIDE
     Indication: Endocarditis
     Dosage: 2 G
     Dates: start: 20231027
  25. CEFEPIME [Concomitant]
     Active Substance: CEFEPIME HYDROCHLORIDE
     Indication: Staphylococcal infection
  26. CEFEPIME [Concomitant]
     Active Substance: CEFEPIME HYDROCHLORIDE
     Indication: Enterococcal infection
  27. TACROLIMUS [Concomitant]
     Active Substance: TACROLIMUS
     Indication: Factor VIII deficiency
     Dosage: UNK
  28. METHADONE HYDROCHLORIDE [Concomitant]
     Active Substance: METHADONE HYDROCHLORIDE
     Indication: Substance dependence
     Dosage: 30 GTT DROPS, QD
  29. METHADONE HYDROCHLORIDE [Concomitant]
     Active Substance: METHADONE HYDROCHLORIDE
     Dosage: 20 GTT DROPS, QD
  30. METHADONE HYDROCHLORIDE [Concomitant]
     Active Substance: METHADONE HYDROCHLORIDE
     Dosage: UNK
     Dates: start: 20230912, end: 20230924
  31. BECOZYM-F [Concomitant]
     Dosage: 1-0-0-0, QD
     Dates: start: 20230912
  32. METAMIZOLE [Concomitant]
     Active Substance: METAMIZOLE
     Dosage: 1000 MG, QID
     Dates: start: 20230917, end: 20231030
  33. PALLADONE [Concomitant]
     Active Substance: HYDROMORPHONE HYDROCHLORIDE
     Dosage: 80 MG, BID
     Dates: start: 20230917
  34. HYDROMORPHONE [Concomitant]
     Active Substance: HYDROMORPHONE
     Dosage: 2.6 MG, PRN (AS NECESSARY)
     Dates: start: 20230917
  35. FOLIC ACID [Concomitant]
     Active Substance: FOLIC ACID
     Dosage: 5 MG, QD
     Dates: start: 20230920
  36. DORMICUM [NITRAZEPAM] [Concomitant]
     Dosage: 7.5 MG
     Dates: start: 20230925
  37. ADVATE [Concomitant]
     Active Substance: ANTIHEMOPHILIC FACTOR, HUMAN RECOMBINANT
     Dosage: 1000 IU
     Dates: start: 20230917, end: 202309
  38. ADVATE [Concomitant]
     Active Substance: ANTIHEMOPHILIC FACTOR, HUMAN RECOMBINANT
     Dosage: 1500 IU
     Dates: start: 20230921, end: 202309
  39. ADVATE [Concomitant]
     Active Substance: ANTIHEMOPHILIC FACTOR, HUMAN RECOMBINANT
     Dosage: 2000 IU
     Dates: start: 20230929, end: 20231027
  40. NACL B.BRAUN [Concomitant]
     Dosage: 50-0-0-0, QD
     Dates: start: 20230919
  41. TRANEXAMIC ACID [Concomitant]
     Active Substance: TRANEXAMIC ACID
     Dosage: UNK
     Dates: start: 20230924, end: 20230927
  42. TRANEXAMIC ACID [Concomitant]
     Active Substance: TRANEXAMIC ACID
     Dosage: UNK
     Dates: start: 20230929, end: 20231017
  43. TRANEXAMIC ACID [Concomitant]
     Active Substance: TRANEXAMIC ACID
     Dosage: UNK
     Dates: start: 20231027
  44. HEMLIBRA [Concomitant]
     Active Substance: EMICIZUMAB-KXWH
     Indication: Factor VIII deficiency
     Dosage: 150 MG/1 ML
     Route: 058
     Dates: start: 20230912
  45. HEMLIBRA [Concomitant]
     Active Substance: EMICIZUMAB-KXWH
     Dosage: 105 MG/ 0.7 ML
     Route: 058
     Dates: start: 20231004, end: 20231004
  46. HEMLIBRA [Concomitant]
     Active Substance: EMICIZUMAB-KXWH
     Dosage: 60 MG/0.4 ML
     Route: 058
     Dates: start: 20231004, end: 20231004
  47. NOVORAPID [Concomitant]
     Active Substance: INSULIN ASPART
     Dosage: 100 IU/ML
     Dates: start: 20230912
  48. LANTUS [Concomitant]
     Active Substance: INSULIN GLARGINE
     Dosage: 100 IU/ML
     Dates: start: 20230923
  49. DOMPERIDONE [Concomitant]
     Active Substance: DOMPERIDONE
     Dosage: UNK, PRN
     Dates: start: 20230912
  50. VALVERDE SCHLAF [Concomitant]
     Dosage: UNK, PRN
     Dates: start: 20230912
  51. SODIUM PICOSULFATE [Concomitant]
     Active Substance: SODIUM PICOSULFATE
     Dosage: UNK, PRN
     Dates: start: 20230919, end: 20231005
  52. LAXIPEG [Concomitant]
     Dosage: 10 G, PRN
     Dates: start: 20230912
  53. HERBALS [Concomitant]
     Active Substance: HERBALS
     Dosage: UNK, PRN
     Dates: start: 20231027
  54. DAFALGAN [Concomitant]
     Active Substance: ACETAMINOPHEN
     Dosage: 500 MG
     Dates: start: 20230913
  55. DAFALGAN [Concomitant]
     Active Substance: ACETAMINOPHEN
     Dosage: UNK, PRN
  56. DAFALGAN [Concomitant]
     Active Substance: ACETAMINOPHEN
     Dosage: 1 G
     Dates: start: 20231015, end: 20231030
  57. ONDANSETRON [Concomitant]
     Active Substance: ONDANSETRON
     Dosage: UNK UNK, PRN
     Dates: start: 20231001
  58. IMAZOL [CLOTRIMAZOLE] [Concomitant]
     Dosage: UNK
     Dates: start: 20231012, end: 20231016
  59. HEPARINUM [HEPARIN] [Concomitant]
     Dosage: 20000 IU
     Dates: start: 20230917, end: 20231020
  60. ARANESP [Concomitant]
     Active Substance: DARBEPOETIN ALFA
     Dosage: 20 UG
     Dates: start: 20230920, end: 20231002
  61. NEXIUM [Concomitant]
     Active Substance: ESOMEPRAZOLE MAGNESIUM
     Dosage: 40 MG
     Dates: start: 20230912, end: 20231005
  62. IOXITALAMIC ACID [Concomitant]
     Active Substance: IOXITALAMIC ACID
     Dosage: UNK
     Dates: start: 20230920, end: 20231005
  63. THIAMINE HYDROCHLORIDE [Concomitant]
     Active Substance: THIAMINE HYDROCHLORIDE
     Dosage: 500 MG
     Dates: start: 20230912, end: 20230917
  64. LORAZEPAM [Concomitant]
     Active Substance: LORAZEPAM
     Dosage: 1 G
     Dates: start: 20230921, end: 20230921
  65. KONAKION [Concomitant]
     Active Substance: PHYTONADIONE
     Dosage: UNK
     Route: 048
     Dates: start: 20230924, end: 20230927

REACTIONS (1)
  - Liver disorder [Not Recovered/Not Resolved]

NARRATIVE: CASE EVENT DATE: 20231030
